FAERS Safety Report 5614660-0 (Version None)
Quarter: 2008Q1

REPORT INFORMATION
  Report Type: 
  Country: None (occurrence: None)
  Receive Date: 20080130
  Receipt Date: 20080128
  Transmission Date: 20080703
  Serious: No
  Sender: FDA-Public Use
  Company Number: ADE# 08-012

PATIENT
  Age: 65 Year
  Sex: Female
  Weight: 56.6996 kg

DRUGS (5)
  1. ZOLPIDEM [Suspect]
     Indication: SLEEP DISORDER
     Dosage: 1 TABLET BEDTIME
     Dates: start: 20071101, end: 20080121
  2. LIPITOR [Concomitant]
  3. DYAZIDE (GEQ) [Concomitant]
  4. VERAPAMIL EXTENDED-RELEASE [Concomitant]
  5. FLUXETINE [Concomitant]

REACTIONS (2)
  - AMNESIA [None]
  - LOSS OF CONSCIOUSNESS [None]
